FAERS Safety Report 5283205-X (Version None)
Quarter: 2007Q2

REPORT INFORMATION
  Report Type: 
  Country: None (occurrence: None)
  Receive Date: 20070402
  Receipt Date: 20070322
  Transmission Date: 20071010
  Serious: Yes (Hospitalization)
  Sender: FDA-Public Use
  Company Number: FR-GLAXOSMITHKLINE-B0458865A

PATIENT
  Age: 59 Year
  Sex: Female
  Weight: 60 kg

DRUGS (8)
  1. DEROXAT [Suspect]
     Indication: DEPRESSION
     Dosage: .5TAB PER DAY
     Route: 048
     Dates: end: 20060829
  2. ELISOR [Concomitant]
     Dosage: 20MG PER DAY
     Route: 048
     Dates: start: 20060131, end: 20060201
  3. DAFLON [Concomitant]
     Dosage: 500MG TWICE PER DAY
     Route: 048
  4. NUCTALON [Concomitant]
     Indication: INSOMNIA
     Route: 048
  5. MIZOLLEN [Concomitant]
     Dosage: 10MG PER DAY
     Route: 048
     Dates: start: 20060717
  6. VITAMINE B12 [Concomitant]
     Indication: DRUG USE FOR UNKNOWN INDICATION
     Route: 047
  7. VITAMINE A (AUXINA) [Concomitant]
     Indication: DRUG USE FOR UNKNOWN INDICATION
     Route: 047
  8. CETIRIZINE HCL [Concomitant]
     Indication: DRUG USE FOR UNKNOWN INDICATION
     Dosage: 1TAB PER DAY
     Route: 048

REACTIONS (8)
  - ASTHENIA [None]
  - CHEST PAIN [None]
  - CHILLS [None]
  - COUGH [None]
  - CRYPTOGENIC ORGANISING PNEUMONIA [None]
  - DYSPNOEA EXERTIONAL [None]
  - LUNG DISORDER [None]
  - PYREXIA [None]
